FAERS Safety Report 24170662 (Version 1)
Quarter: 2024Q3

REPORT INFORMATION
  Report Type: Spontaneous
  Country: US (occurrence: None)
  Receive Date: 20240802
  Receipt Date: 20240802
  Transmission Date: 20241016
  Serious: Yes (Death)
  Sender: Public
  Company Number: None

PATIENT
  Sex: Female

DRUGS (1)
  1. TOBRAMYCIN [Suspect]
     Active Substance: TOBRAMYCIN\TOBRAMYCIN SULFATE
     Indication: Pneumonia pseudomonal
     Dosage: OTHER QUANTITY : INHALE 1 VIAL;?OTHER FREQUENCY : DAILY FOR 28 DAYS ON/28 DAYS OFF, AS DIR;?
     Route: 055
     Dates: start: 20150627

REACTIONS (1)
  - Death [None]
